FAERS Safety Report 7983377-X (Version None)
Quarter: 2011Q4

REPORT INFORMATION
  Report Type: 
  Country: None (occurrence: None)
  Receive Date: 20111215
  Receipt Date: 20111208
  Transmission Date: 20120403
  Serious: Yes (Hospitalization)
  Sender: FDA-Public Use
  Company Number: US-B.I. PHARMACEUTICALS,INC./RIDGEFIELD-2011-BP-27680BP

PATIENT
  Age: 84 Year
  Sex: Female

DRUGS (4)
  1. DIOVAN [Concomitant]
     Indication: HYPERTENSION
  2. PRADAXA [Suspect]
     Indication: ATRIAL FIBRILLATION
     Dosage: 25920000 MG
     Route: 048
     Dates: start: 20110801
  3. PREDNISONE TAB [Concomitant]
     Indication: ARTHRITIS
  4. SOTALOL HCL [Concomitant]
     Indication: HYPERTENSION

REACTIONS (9)
  - HAEMATOCRIT DECREASED [None]
  - PETECHIAE [None]
  - MELAENA [None]
  - PLATELET COUNT DECREASED [None]
  - FATIGUE [None]
  - HYPOTENSION [None]
  - EPISTAXIS [None]
  - NAUSEA [None]
  - CONFUSIONAL STATE [None]
